FAERS Safety Report 4564447-5 (Version None)
Quarter: 2005Q1

REPORT INFORMATION
  Report Type: 
  Country: None (occurrence: None)
  Receive Date: 20050126
  Receipt Date: 20050105
  Transmission Date: 20050727
  Serious: Yes (Hospitalization)
  Sender: FDA-Public Use
  Company Number: A01200500034

PATIENT
  Age: 70 Year
  Sex: Male

DRUGS (1)
  1. LEUPROLIDE ACETATE [Suspect]
     Dosage: SUBCUTANEOUS
     Route: 058
     Dates: start: 20041214, end: 20041214

REACTIONS (1)
  - PULMONARY EMBOLISM [None]
